FAERS Safety Report 21044937 (Version 1)
Quarter: 2022Q3

REPORT INFORMATION
  Report Type: Spontaneous
  Country: US (occurrence: US)
  Receive Date: 20220705
  Receipt Date: 20220705
  Transmission Date: 20221026
  Serious: No
  Sender: FDA-Public Use
  Company Number: US-ELI_LILLY_AND_COMPANY-US202206003217

PATIENT
  Sex: Female

DRUGS (1)
  1. BEBTELOVIMAB [Suspect]
     Active Substance: BEBTELOVIMAB
     Indication: COVID-19
     Dosage: 175 MG, SINGLE
     Route: 042
     Dates: start: 20220606, end: 20220606

REACTIONS (6)
  - Illness [Unknown]
  - Cough [Unknown]
  - Sinus disorder [Unknown]
  - Tremor [Unknown]
  - Infusion related reaction [Unknown]
  - Chills [Unknown]
